FAERS Safety Report 20345702 (Version 4)
Quarter: 2022Q1

REPORT INFORMATION
  Report Type: Report from Study
  Country: AU (occurrence: AU)
  Receive Date: 20220118
  Receipt Date: 20220314
  Transmission Date: 20220424
  Serious: Yes (Hospitalization, Other)
  Sender: FDA-Public Use
  Company Number: AU-NOVARTISPH-NVSC2022AU007147

PATIENT
  Sex: Male

DRUGS (3)
  1. SANDOSTATIN LAR DEPOT [Suspect]
     Active Substance: OCTREOTIDE ACETATE
     Indication: Acromegaly
     Dosage: 20 MG, Q4W (SOLUTION)
     Route: 030
  2. SANDOSTATIN LAR DEPOT [Suspect]
     Active Substance: OCTREOTIDE ACETATE
  3. SANDOSTATIN LAR DEPOT [Suspect]
     Active Substance: OCTREOTIDE ACETATE

REACTIONS (5)
  - Fall [Unknown]
  - COVID-19 [Unknown]
  - Mobility decreased [Recovering/Resolving]
  - Speech disorder [Recovering/Resolving]
  - Inappropriate schedule of product administration [Unknown]
